FAERS Safety Report 7832449-9 (Version None)
Quarter: 2011Q4

REPORT INFORMATION
  Report Type: 
  Country: None (occurrence: None)
  Receive Date: 20111023
  Receipt Date: 20110916
  Transmission Date: 20120403
  Serious: Yes (Other)
  Sender: FDA-Public Use
  Company Number: PHHY2011PE83250

PATIENT
  Sex: Female

DRUGS (1)
  1. DIOVAN HCT [Suspect]
     Indication: HYPERTENSION
     Dosage: 1 DF, UNK (160 VALSARTAN AND 12.5MG HYDROCHLOROTHIAZIDE)
     Dates: start: 20100529, end: 20110802

REACTIONS (1)
  - ARRHYTHMIA [None]
